FAERS Safety Report 10585871 (Version 1)
Quarter: 2014Q4

REPORT INFORMATION
  Report Type: Spontaneous
  Country: DK (occurrence: DE)
  Receive Date: 20141114
  Receipt Date: 20141114
  Transmission Date: 20150529
  Serious: Yes (Congenital Anomaly, Other)
  Sender: FDA-Public Use
  Company Number: DE-FRI-1000072397

PATIENT
  Age: 0 Year
  Sex: Male
  Weight: 3 kg

DRUGS (6)
  1. DOMINAL FORTE [Concomitant]
     Active Substance: PROTHIPENDYL HYDROCHLORIDE
     Dosage: 80 MG
     Route: 064
  2. SEROQUEL [Suspect]
     Active Substance: QUETIAPINE FUMARATE
     Dosage: 1200 MG
     Route: 064
     Dates: start: 20120827, end: 20130522
  3. L-THYROXIN [Concomitant]
     Active Substance: LEVOTHYROXINE SODIUM
     Dosage: 75 MICROGRAMS
     Route: 064
     Dates: start: 20120827, end: 20130522
  4. CITALOPRAM [Suspect]
     Active Substance: CITALOPRAM HYDROBROMIDE
     Dosage: 40 MG
     Route: 064
     Dates: start: 20120827, end: 20130522
  5. FOLSAEURE [Concomitant]
     Active Substance: FOLIC ACID
     Route: 064
  6. INSULIN [Concomitant]
     Active Substance: INSULIN NOS
     Route: 064

REACTIONS (8)
  - Restlessness [Recovering/Resolving]
  - Agitation neonatal [Recovering/Resolving]
  - Neonatal respiratory distress syndrome [Recovered/Resolved]
  - Foetal exposure during pregnancy [Unknown]
  - Caesarean section [None]
  - Atrial septal defect [Unknown]
  - Tremor [Recovering/Resolving]
  - Feeding disorder [Recovered/Resolved]

NARRATIVE: CASE EVENT DATE: 20120827
